FAERS Safety Report 24286153 (Version 1)
Quarter: 2024Q3

REPORT INFORMATION
  Report Type: Spontaneous
  Country: US (occurrence: US)
  Receive Date: 20240905
  Receipt Date: 20240905
  Transmission Date: 20241016
  Serious: No
  Sender: ABBVIE
  Company Number: US-ABBVIE-5898170

PATIENT
  Sex: Female
  Weight: 43 kg

DRUGS (1)
  1. HUMIRA [Suspect]
     Active Substance: ADALIMUMAB
     Indication: Crohn^s disease
     Dosage: STRENGTH: 40 MG
     Route: 058

REACTIONS (4)
  - Weight decreased [Unknown]
  - Visual impairment [Unknown]
  - Memory impairment [Unknown]
  - Wrong technique in product usage process [Unknown]
